FAERS Safety Report 11206389 (Version 2)
Quarter: 2015Q3

REPORT INFORMATION
  Report Type: Spontaneous
  Country: US (occurrence: US)
  Receive Date: 20150622
  Receipt Date: 20150706
  Transmission Date: 20151125
  Serious: Yes (Other)
  Sender: FDA-Public Use
  Company Number: US-AMGEN-USASP2015059318

PATIENT
  Age: 79 Year
  Sex: Female

DRUGS (1)
  1. PROLIA [Suspect]
     Active Substance: DENOSUMAB
     Indication: OSTEOPOROSIS
     Dosage: 60 MG, UNK
     Route: 065
     Dates: start: 20120904

REACTIONS (16)
  - Postoperative wound infection [Unknown]
  - Paraesthesia [Not Recovered/Not Resolved]
  - Malaise [Unknown]
  - Cataract [Unknown]
  - Weight decreased [Unknown]
  - Hypoaesthesia oral [Not Recovered/Not Resolved]
  - Drug effect incomplete [Unknown]
  - Squamous cell carcinoma [Unknown]
  - Abdominal pain upper [Not Recovered/Not Resolved]
  - Upper respiratory tract infection [Unknown]
  - Rash [Unknown]
  - Hypoaesthesia [Not Recovered/Not Resolved]
  - Paraesthesia oral [Not Recovered/Not Resolved]
  - Feeling abnormal [Unknown]
  - Headache [Unknown]
  - Fatigue [Unknown]

NARRATIVE: CASE EVENT DATE: 20120919
